FAERS Safety Report 11345530 (Version 2)
Quarter: 2016Q1

REPORT INFORMATION
  Report Type: Spontaneous
  Country: US (occurrence: US)
  Receive Date: 20150806
  Receipt Date: 20160311
  Transmission Date: 20160525
  Serious: No
  Sender: FDA-Public Use
  Company Number: US-PFIZER INC-2015261567

PATIENT
  Age: 61 Year
  Sex: Female

DRUGS (2)
  1. XELJANZ [Suspect]
     Active Substance: TOFACITINIB CITRATE
     Indication: ALOPECIA
     Dosage: 15 MG, 2X/DAY
  2. XELJANZ [Suspect]
     Active Substance: TOFACITINIB CITRATE
     Indication: RHEUMATOID ARTHRITIS
     Dosage: 15 MG, DAILY TAKE 5 MG (1 TABLET) BY MOUTH IN THE MORNING AND 10 MG ( 2 TABLETS) AT BEDTIME)
     Route: 048

REACTIONS (3)
  - Product use issue [Unknown]
  - Nasopharyngitis [Unknown]
  - Bronchitis [Unknown]
